FAERS Safety Report 16157296 (Version 1)
Quarter: 2019Q2

REPORT INFORMATION
  Report Type: Spontaneous
  Country: JP (occurrence: JP)
  Receive Date: 20190404
  Receipt Date: 20190404
  Transmission Date: 20190711
  Serious: Yes (Death)
  Sender: FDA-Public Use
  Company Number: JP-BAYER-2019-067270

PATIENT
  Age: 80 Year
  Sex: Male
  Weight: 58.5 kg

DRUGS (7)
  1. DABIGATRAN [Interacting]
     Active Substance: DABIGATRAN
  2. FAMOTIDINE. [Concomitant]
     Active Substance: FAMOTIDINE
  3. MIDAZOLAM [Concomitant]
     Active Substance: MIDAZOLAM HYDROCHLORIDE
  4. PETHIDINE HYDROCHLORIDE [Concomitant]
     Active Substance: MEPERIDINE HYDROCHLORIDE
  5. AMLODIPINE [Concomitant]
     Active Substance: AMLODIPINE BESYLATE
  6. BAYASPIRIN 100 MG [Suspect]
     Active Substance: ASPIRIN
     Route: 048
  7. HEPARIN [Interacting]
     Active Substance: HEPARIN SODIUM

REACTIONS (2)
  - Labelled drug-drug interaction medication error [Fatal]
  - Gastric haemorrhage [Fatal]
